FAERS Safety Report 19477727 (Version 1)
Quarter: 2021Q2

REPORT INFORMATION
  Report Type: Spontaneous
  Country: US (occurrence: US)
  Receive Date: 20210630
  Receipt Date: 20210630
  Transmission Date: 20210717
  Serious: No
  Sender: FDA-Public Use
  Company Number: US-KRAMERLABS-2020-US-015038

PATIENT
  Age: 24 Year
  Sex: Male
  Weight: 89.81 kg

DRUGS (1)
  1. NIZORAL A?D [Suspect]
     Active Substance: KETOCONAZOLE
     Indication: PRURITUS
     Dosage: USED TWO TIMES
     Route: 061
     Dates: start: 20200709, end: 20200720

REACTIONS (4)
  - Pruritus [Recovering/Resolving]
  - Drug ineffective [Recovered/Resolved]
  - Condition aggravated [Recovering/Resolving]
  - Dry skin [Recovering/Resolving]

NARRATIVE: CASE EVENT DATE: 20200709
